FAERS Safety Report 7956383-9 (Version None)
Quarter: 2011Q4

REPORT INFORMATION
  Report Type: 
  Country: None (occurrence: None)
  Receive Date: 20111205
  Receipt Date: 20111130
  Transmission Date: 20120403
  Serious: Yes (Hospitalization)
  Sender: FDA-Public Use
  Company Number: JP-PFIZER INC-2010035806

PATIENT
  Age: 60 Year
  Sex: Female
  Weight: 49 kg

DRUGS (14)
  1. SILDENAFIL CITRATE [Suspect]
     Indication: PULMONARY ARTERIAL HYPERTENSION
     Dosage: 20 MG, 1X/DAY
     Route: 048
     Dates: start: 20090304
  2. VESANOID [Suspect]
     Dosage: 20 MG, 3X/DAY
     Route: 048
     Dates: start: 20090219, end: 20090723
  3. TRACLEER [Concomitant]
     Indication: PULMONARY HYPERTENSION
     Dosage: 125 MG, 2X/DAY
     Route: 048
     Dates: start: 20080717
  4. ALDACTONE [Concomitant]
     Indication: PULMONARY HYPERTENSION
     Dosage: 25 MG, 1X/DAY
     Route: 048
  5. MUCODYNE [Concomitant]
     Dosage: 500 MG, 3X/DAY
     Route: 048
  6. LASIX [Concomitant]
     Dosage: 20 MG, 2X/DAY
     Route: 048
  7. OMEPRAZOLE [Concomitant]
     Dosage: 10 MG, 1X/DAY
     Route: 048
     Dates: start: 20090203
  8. SILDENAFIL CITRATE [Suspect]
     Dosage: 20 MG, 2X/DAY
     Dates: start: 20090307
  9. VERAPAMIL HCL [Concomitant]
     Dosage: 40 MG, 2X/DAY
     Route: 048
  10. CLARITHROMYCIN [Concomitant]
     Dosage: 200 MG, 1X/DAY
     Route: 048
  11. VFEND [Concomitant]
     Dosage: 200 MG, 2X/DAY
     Route: 048
     Dates: end: 20090430
  12. ULGUT [Concomitant]
     Dosage: 200 MG, 2X/DAY
     Route: 048
  13. SILDENAFIL CITRATE [Suspect]
     Dosage: 20 MG, 3X/DAY
     Dates: start: 20090310, end: 20090430
  14. BERAPROST SODIUM [Concomitant]
     Indication: PULMONARY HYPERTENSION
     Dosage: 60 UG, 2X/DAY
     Route: 048
     Dates: start: 20080724

REACTIONS (1)
  - ANAEMIA [None]
